FAERS Safety Report 15458993 (Version 1)
Quarter: 2018Q4

REPORT INFORMATION
  Report Type: Spontaneous
  Country: FR (occurrence: FR)
  Receive Date: 20181003
  Receipt Date: 20181003
  Transmission Date: 20190204
  Serious: Yes (Hospitalization, Other)
  Sender: FDA-Public Use
  Company Number: PHHY2018FR111980

PATIENT
  Age: 11 Year
  Sex: Female

DRUGS (4)
  1. THYMOGLOBULIN [Concomitant]
     Active Substance: LAPINE T-LYMPHOCYTE IMMUNE GLOBULIN
     Indication: PROPHYLAXIS AGAINST GRAFT VERSUS HOST DISEASE
     Route: 065
  2. METHOTREXATE. [Suspect]
     Active Substance: METHOTREXATE
     Indication: PROPHYLAXIS AGAINST GRAFT VERSUS HOST DISEASE
     Route: 065
  3. CICLOSPORIN [Suspect]
     Active Substance: CYCLOSPORINE
     Indication: LYMPHOCYTIC LEUKAEMIA
     Route: 065
  4. LEFLUNOMIDE. [Suspect]
     Active Substance: LEFLUNOMIDE
     Indication: LYMPHOCYTIC LEUKAEMIA
     Route: 065

REACTIONS (9)
  - Large intestine perforation [Recovered/Resolved]
  - Metaplasia [Recovered/Resolved]
  - Off label use [Unknown]
  - Granuloma [Recovered/Resolved]
  - Chronic graft versus host disease in intestine [Recovered/Resolved]
  - Drug ineffective [Recovered/Resolved]
  - Apoptosis [Recovered/Resolved]
  - Fibrosis [Recovered/Resolved]
  - Ileal stenosis [Recovered/Resolved]
